FAERS Safety Report 5941943-7 (Version None)
Quarter: 2008Q4

REPORT INFORMATION
  Report Type: 
  Country: None (occurrence: None)
  Receive Date: 20081105
  Receipt Date: 20081028
  Transmission Date: 20090506
  Serious: Yes (Other)
  Sender: FDA-Public Use
  Company Number: JP-GENENTECH-270700

PATIENT
  Age: 56 Year
  Sex: Male

DRUGS (5)
  1. ACTIVASE [Suspect]
     Indication: CEREBRAL ARTERY EMBOLISM
     Dosage: 46.6 MG, UNK
     Route: 042
     Dates: start: 20060123, end: 20060123
  2. RADICUT [Concomitant]
     Indication: DRUG USE FOR UNKNOWN INDICATION
     Dosage: 60 MG, QD
     Route: 041
     Dates: start: 20060123, end: 20060125
  3. GLYCEOL [Concomitant]
     Indication: DRUG USE FOR UNKNOWN INDICATION
     Dosage: 400 ML, QD
     Route: 041
     Dates: start: 20060123, end: 20060130
  4. TAGAMET [Concomitant]
     Indication: DRUG USE FOR UNKNOWN INDICATION
     Dosage: 400 MG, QD
     Route: 041
     Dates: start: 20060123, end: 20060124
  5. HEPARIN SODIUM [Concomitant]
     Indication: DRUG USE FOR UNKNOWN INDICATION
     Dosage: 10000 IU, QD
     Route: 041
     Dates: start: 20060124, end: 20060209

REACTIONS (1)
  - RENAL INFARCT [None]
